FAERS Safety Report 18612336 (Version 5)
Quarter: 2021Q4

REPORT INFORMATION
  Report Type: Other
  Country: CA (occurrence: CA)
  Receive Date: 20201214
  Receipt Date: 20211111
  Transmission Date: 20220304
  Serious: Yes (Other)
  Sender: FDA-Public Use
  Company Number: CA-TOLMAR, INC.-20CA024276

PATIENT
  Age: 79 Year
  Sex: Male

DRUGS (6)
  1. ELIGARD [Suspect]
     Active Substance: LEUPROLIDE ACETATE
     Indication: Prostate cancer
     Dosage: 22.5 MG, Q 3 MONTH
     Route: 058
     Dates: start: 20190506
  2. ELIGARD [Suspect]
     Active Substance: LEUPROLIDE ACETATE
     Dosage: 22.5 MG, Q 3 MONTH
     Route: 058
     Dates: start: 20201203
  3. ELIGARD [Suspect]
     Active Substance: LEUPROLIDE ACETATE
     Dosage: 22.5 MG, Q 3 MONTH
     Route: 058
     Dates: start: 20210520
  4. ELIGARD [Suspect]
     Active Substance: LEUPROLIDE ACETATE
     Dosage: 22.5 MG, Q 3 MONTH
     Route: 058
     Dates: start: 20210812
  5. ELIGARD [Suspect]
     Active Substance: LEUPROLIDE ACETATE
     Dosage: 22.5 MG, Q 3 MONTH
     Route: 058
     Dates: start: 20211103
  6. XGEVA [Concomitant]
     Active Substance: DENOSUMAB
     Indication: Product used for unknown indication
     Dosage: 120 MILLIGRAM

REACTIONS (7)
  - Loss of consciousness [Unknown]
  - Injection site discomfort [Unknown]
  - Chills [Unknown]
  - Asthenia [Not Recovered/Not Resolved]
  - Dizziness [Unknown]
  - Fatigue [Not Recovered/Not Resolved]
  - Hot flush [Unknown]

NARRATIVE: CASE EVENT DATE: 20201203
